FAERS Safety Report 10839081 (Version 1)
Quarter: 2015Q1

REPORT INFORMATION
  Report Type: Report from Study
  Country: US (occurrence: US)
  Receive Date: 20150220
  Receipt Date: 20150220
  Transmission Date: 20150721
  Serious: No
  Sender: FDA-Public Use
  Company Number: US-ABBVIE-14P-163-1254740-00

PATIENT
  Age: 26 Year
  Sex: Female

DRUGS (8)
  1. HUMIRA [Suspect]
     Active Substance: ADALIMUMAB
     Indication: CROHN^S DISEASE
     Dates: start: 20140530, end: 20140530
  2. HUMIRA [Suspect]
     Active Substance: ADALIMUMAB
     Dates: start: 20140613, end: 20140613
  3. HUMIRA [Suspect]
     Active Substance: ADALIMUMAB
  4. PREDNISONE. [Concomitant]
     Active Substance: PREDNISONE
     Indication: PRODUCT USED FOR UNKNOWN INDICATION
     Dosage: WOULD TAKE FOR ONE MORE WEEK THEN REDUCE
  5. PAXIL [Concomitant]
     Active Substance: PAROXETINE HYDROCHLORIDE
     Indication: ANXIETY
  6. MELOXICAM. [Concomitant]
     Active Substance: MELOXICAM
     Indication: ARTHRALGIA
  7. ZOFRAN [Concomitant]
     Active Substance: ONDANSETRON HYDROCHLORIDE
     Indication: NAUSEA
  8. IBUPROFEN. [Concomitant]
     Active Substance: IBUPROFEN
     Indication: ARTHRALGIA
     Dosage: OVER THE COUNTER

REACTIONS (5)
  - Dyspnoea [Unknown]
  - Chest discomfort [Unknown]
  - Chest pain [Unknown]
  - Injection site pain [Recovering/Resolving]
  - White blood cell count increased [Unknown]

NARRATIVE: CASE EVENT DATE: 20140530
